FAERS Safety Report 18601361 (Version 1)
Quarter: 2020Q4

REPORT INFORMATION
  Report Type: Spontaneous
  Country: US (occurrence: US)
  Receive Date: 20201210
  Receipt Date: 20201210
  Transmission Date: 20210114
  Serious: No
  Sender: FDA-Public Use
  Company Number: US-B.I. PHARMACEUTICALS,INC./RIDGEFIELD-2020-BI-067782

PATIENT
  Age: 41 Year
  Sex: Female

DRUGS (1)
  1. SPIRIVA RESPIMAT [Suspect]
     Active Substance: TIOTROPIUM BROMIDE
     Indication: ASTHMA
     Dosage: 1.25MCG, 1 INHALATION IN THE MORNING, 1 INHALATION AT NIGHT
     Dates: start: 2018

REACTIONS (2)
  - Inappropriate schedule of product administration [Unknown]
  - Dose calculation error [Unknown]

NARRATIVE: CASE EVENT DATE: 2018
